FAERS Safety Report 15976602 (Version 1)
Quarter: 2019Q1

REPORT INFORMATION
  Report Type: Spontaneous
  Country: US (occurrence: US)
  Receive Date: 20190218
  Receipt Date: 20190218
  Transmission Date: 20190418
  Serious: Yes (Death, Hospitalization, Other)
  Sender: FDA-Public Use
  Company Number: US-B.I. PHARMACEUTICALS,INC./RIDGEFIELD-2019-BI-007092

PATIENT
  Age: 77 Year
  Sex: Female

DRUGS (6)
  1. VERAPAMIL [Concomitant]
     Active Substance: VERAPAMIL HYDROCHLORIDE
     Indication: PRODUCT USED FOR UNKNOWN INDICATION
     Dosage: 1 TABLET ONCE A DAY;  FORM STRENGTH: 120 MG; FORMULATION: TABLET
     Route: 048
  2. SPIRIVA [Suspect]
     Active Substance: TIOTROPIUM BROMIDE MONOHYDRATE
     Indication: CHRONIC OBSTRUCTIVE PULMONARY DISEASE
     Route: 055
     Dates: start: 2013
  3. CITALOPRAM [Concomitant]
     Active Substance: CITALOPRAM HYDROBROMIDE
     Indication: DEPRESSION
     Dosage: 1 TABLET ONCE A DAY;  FORM STRENGTH: 40 MG; FORMULATION: TABLET
     Route: 048
  4. SODIUM BICARBONATE. [Concomitant]
     Active Substance: SODIUM BICARBONATE
     Indication: PRODUCT USED FOR UNKNOWN INDICATION
     Dosage: 1 TABLET 4 TIMES A DAY;  FORM STRENGTH: 650 MG; FORMULATION: TABLET
     Route: 048
  5. MONTELUKAST [Concomitant]
     Active Substance: MONTELUKAST SODIUM
     Indication: CHRONIC OBSTRUCTIVE PULMONARY DISEASE
     Dosage: 1 TABLET ONCE A DAY;  FORM STRENGTH: 10 MG; FORMULATION: TABLET
     Route: 048
  6. MIDODRINE [Concomitant]
     Active Substance: MIDODRINE
     Indication: HYPOTENSION
     Dosage: 1 TABLET TWICE A DAY;  FORM STRENGTH: 10 MG; FORMULATION: TABLET
     Route: 048

REACTIONS (3)
  - Death [Fatal]
  - Renal failure [Unknown]
  - Pneumonia [Unknown]

NARRATIVE: CASE EVENT DATE: 2018
